FAERS Safety Report 8823265 (Version 1)
Quarter: 2012Q4

REPORT INFORMATION
  Report Type: 
  Country: JP (occurrence: JP)
  Receive Date: 20121003
  Receipt Date: 20121003
  Transmission Date: 20130627
  Serious: Yes (Hospitalization, Disabling)
  Sender: FDA-Public Use
  Company Number: JP-GLAXOSMITHKLINE-B0822382A

PATIENT
  Age: 80 Year
  Sex: Female

DRUGS (1)
  1. REVOLADE [Suspect]
     Indication: IDIOPATHIC THROMBOCYTOPENIC PURPURA
     Dosage: 37.5MG Per day
     Route: 048
     Dates: end: 20120809

REACTIONS (8)
  - Cerebral infarction [Recovered/Resolved with Sequelae]
  - Cerebral haemorrhage [Recovered/Resolved with Sequelae]
  - Platelet count decreased [Unknown]
  - Cerebral infarction [Unknown]
  - Visual impairment [Unknown]
  - Dementia [Unknown]
  - Blindness [Unknown]
  - Paresis [Unknown]
